FAERS Safety Report 6128126-5 (Version None)
Quarter: 2009Q1

REPORT INFORMATION
  Report Type: 
  Country: None (occurrence: None)
  Receive Date: 20090323
  Receipt Date: 20090309
  Transmission Date: 20090719
  Serious: No
  Sender: FDA-Public Use
  Company Number: JAFRA4232

PATIENT
  Sex: Female

DRUGS (3)
  1. KETOCONAZOLE [Suspect]
     Indication: PSORIASIS
     Route: 048
     Dates: start: 19860721, end: 19870804
  2. VITAMINS AND MINERALS [Concomitant]
     Indication: PSORIASIS
     Route: 048
  3. BEPANTHENE [Concomitant]
     Indication: PSORIASIS
     Route: 048

REACTIONS (1)
  - DRUG EXPOSURE DURING PREGNANCY [None]
